FAERS Safety Report 6737209-8 (Version None)
Quarter: 2010Q2

REPORT INFORMATION
  Report Type: 
  Country: None (occurrence: None)
  Receive Date: 20100524
  Receipt Date: 20100514
  Transmission Date: 20101027
  Serious: No
  Sender: FDA-Public Use
  Company Number: US-BIOGENIDEC-2010BI016437

PATIENT
  Age: 32 Year
  Sex: Female

DRUGS (2)
  1. TYSABRI [Suspect]
     Indication: MULTIPLE SCLEROSIS
     Route: 042
     Dates: start: 20080903, end: 20080903
  2. TYSABRI [Suspect]
     Route: 042
     Dates: start: 20090921

REACTIONS (8)
  - BURNING SENSATION [None]
  - CONTUSION [None]
  - INFUSION SITE EXTRAVASATION [None]
  - INFUSION SITE PRURITUS [None]
  - INFUSION SITE SWELLING [None]
  - PARAESTHESIA [None]
  - THROAT IRRITATION [None]
  - URTICARIA [None]
